FAERS Safety Report 19984398 (Version 1)
Quarter: 2021Q4

REPORT INFORMATION
  Report Type: Spontaneous
  Country: US (occurrence: US)
  Receive Date: 20211022
  Receipt Date: 20211022
  Transmission Date: 20220303
  Serious: Yes (Other)
  Sender: FDA-Public Use
  Company Number: US-MYLANLABS-2021M1073823

PATIENT
  Age: 25 Year
  Sex: Female

DRUGS (5)
  1. DOXORUBICIN [Suspect]
     Active Substance: DOXORUBICIN
     Indication: Soft tissue sarcoma
     Dosage: 50 MILLIGRAM/SQ. METER (ON DAY 1)
     Route: 065
  2. DOXORUBICIN [Suspect]
     Active Substance: DOXORUBICIN
     Indication: Synovial sarcoma
  3. IFOSFAMIDE [Suspect]
     Active Substance: IFOSFAMIDE
     Indication: Soft tissue sarcoma
     Dosage: 2.5 MILLIGRAM/SQ. METER, QD (ON DAY 1-2)
     Route: 065
  4. IFOSFAMIDE [Suspect]
     Active Substance: IFOSFAMIDE
     Indication: Synovial sarcoma
  5. MESNA [Suspect]
     Active Substance: MESNA
     Indication: Drug therapy
     Dosage: UNK
     Route: 065

REACTIONS (2)
  - Amniotic fluid index decreased [Unknown]
  - Maternal exposure during pregnancy [Recovered/Resolved]
